FAERS Safety Report 4638608-0 (Version None)
Quarter: 2005Q2

REPORT INFORMATION
  Report Type: 
  Country: None (occurrence: None)
  Receive Date: 20050415
  Receipt Date: 20050415
  Transmission Date: 20051028
  Serious: Yes (Hospitalization, Other)
  Sender: FDA-Public Use
  Company Number: None

PATIENT
  Age: 60 Year
  Sex: Female
  Weight: 77.1115 kg

DRUGS (2)
  1. THIOTHIXENE [Suspect]
     Indication: BIPOLAR DISORDER
     Dosage: 5 MG PO  ONE QHS
     Route: 048
     Dates: start: 20040903
  2. LITHIUM CARBONATE [Suspect]
     Indication: BIPOLAR DISORDER
     Dosage: 300MG PO ONCE BID
     Route: 048
     Dates: start: 20040903

REACTIONS (4)
  - BIPOLAR DISORDER [None]
  - DEMENTIA [None]
  - HEPATIC FAILURE [None]
  - RENAL FAILURE [None]
